FAERS Safety Report 4644627-0 (Version None)
Quarter: 2005Q2

REPORT INFORMATION
  Report Type: 
  Country: None (occurrence: None)
  Receive Date: 20050426
  Receipt Date: 20050422
  Transmission Date: 20051028
  Serious: Yes (Hospitalization)
  Sender: FDA-Public Use
  Company Number: 200511419FR

PATIENT
  Sex: Male

DRUGS (2)
  1. ARAVA [Suspect]
     Route: 048
     Dates: end: 20050401
  2. NSAID'S [Concomitant]
     Dates: end: 20050401

REACTIONS (2)
  - LUNG DISORDER [None]
  - WHEEZING [None]
